FAERS Safety Report 7550709-6 (Version None)
Quarter: 2011Q2

REPORT INFORMATION
  Report Type: 
  Country: None (occurrence: None)
  Receive Date: 20110616
  Receipt Date: 20110609
  Transmission Date: 20111010
  Serious: Yes (Hospitalization)
  Sender: FDA-Public Use
  Company Number: IT-ELI_LILLY_AND_COMPANY-IT201106002508

PATIENT
  Sex: Male

DRUGS (2)
  1. HUMULIN R [Suspect]
     Indication: HYPERGLYCAEMIA
     Dosage: 100 IU, QD
     Dates: start: 20110608, end: 20110609
  2. POLYGELINE [Concomitant]
     Dosage: 3 DF, UNK
     Route: 051

REACTIONS (1)
  - HYPERPYREXIA [None]
